FAERS Safety Report 21374967 (Version 1)
Quarter: 2022Q3

REPORT INFORMATION
  Report Type: Spontaneous
  Country: US (occurrence: US)
  Receive Date: 20220926
  Receipt Date: 20220926
  Transmission Date: 20221027
  Serious: Yes (Other)
  Sender: FDA-Public Use
  Company Number: US-drreddys-LIT/USA/22/0154935

PATIENT
  Age: 46 Year
  Sex: Female

DRUGS (4)
  1. FULVESTRANT [Suspect]
     Active Substance: FULVESTRANT
     Indication: Uterine cancer
  2. LETROZOLE [Concomitant]
     Active Substance: LETROZOLE
     Indication: Uterine cancer
  3. EXEMESTANE [Concomitant]
     Active Substance: EXEMESTANE
     Indication: Uterine cancer
  4. MEGESTROL ACETATE [Concomitant]
     Active Substance: MEGESTROL ACETATE
     Indication: Uterine cancer

REACTIONS (3)
  - Disease progression [Unknown]
  - Uterine cancer [Unknown]
  - Drug ineffective [Unknown]
